FAERS Safety Report 10024012 (Version 1)
Quarter: 2014Q1

REPORT INFORMATION
  Report Type: Spontaneous
  Country: US (occurrence: None)
  Receive Date: 20140319
  Receipt Date: 20140319
  Transmission Date: 20141002
  Serious: Yes (Other)
  Sender: FDA-Public Use
  Company Number: None

PATIENT
  Age: 69 Year
  Sex: Female
  Weight: 47.17 kg

DRUGS (6)
  1. ACETAZOLAMIDE [Suspect]
     Indication: INTRAOCULAR PRESSURE TEST
     Route: 048
     Dates: start: 20140227, end: 20140228
  2. FISH OIL [Concomitant]
  3. COD LIVER OIL [Concomitant]
  4. GARLIC [Concomitant]
  5. NIACIN [Concomitant]
  6. FLAX OIL [Concomitant]

REACTIONS (2)
  - Skin discolouration [None]
  - Unevaluable event [None]
